FAERS Safety Report 9638915 (Version 1)
Quarter: 2013Q4

REPORT INFORMATION
  Report Type: Spontaneous
  Country: US (occurrence: US)
  Receive Date: 20131022
  Receipt Date: 20131022
  Transmission Date: 20140711
  Serious: Yes (Hospitalization)
  Sender: FDA-Public Use
  Company Number: US-BAYER-2013-128026

PATIENT
  Age: 40 Year
  Sex: Female
  Weight: 87.08 kg

DRUGS (5)
  1. YASMIN [Suspect]
  2. PROZAC [Concomitant]
  3. COMBIVENT [Concomitant]
  4. RHINOCORT AQUA [Concomitant]
  5. VENTOLIN [Concomitant]

REACTIONS (1)
  - Pulmonary embolism [None]
